FAERS Safety Report 8334490-9 (Version None)
Quarter: 2012Q2

REPORT INFORMATION
  Report Type: 
  Country: None (occurrence: None)
  Receive Date: 20120503
  Receipt Date: 20120424
  Transmission Date: 20120825
  Serious: Yes (Hospitalization)
  Sender: FDA-Public Use
  Company Number: US-ASTRAZENECA-2012SE20026

PATIENT
  Age: 39 Year
  Sex: Male

DRUGS (1)
  1. NEXIUM [Suspect]
     Route: 048

REACTIONS (4)
  - THROAT IRRITATION [None]
  - INSOMNIA [None]
  - GASTRIC DISORDER [None]
  - INTENTIONAL DRUG MISUSE [None]
